FAERS Safety Report 10009940 (Version 1)
Quarter: 2014Q1

REPORT INFORMATION
  Report Type: Spontaneous
  Country: US (occurrence: US)
  Receive Date: 20140312
  Receipt Date: 20140312
  Transmission Date: 20141002
  Serious: Yes (Other)
  Sender: FDA-Public Use
  Company Number: US-INCYTE CORPORATION-2013IN000486

PATIENT
  Sex: Male

DRUGS (10)
  1. JAKAFI [Suspect]
     Indication: POLYCYTHAEMIA VERA
     Dosage: 10 MG, BID
     Route: 048
     Dates: start: 201301, end: 2013
  2. JAKAFI [Suspect]
     Dosage: 5 MG, BID (1/2 OF A 10 MG TABLET, BID)
     Route: 048
     Dates: start: 2013
  3. WARFARIN [Concomitant]
  4. PRAVASTATIN [Concomitant]
  5. AMLODIPINE [Concomitant]
  6. SILODOSIN [Concomitant]
  7. METOPROLOL [Concomitant]
  8. ALLOPURINOL [Concomitant]
  9. ISOSORBIDE [Concomitant]
  10. FUROSEMIDE [Concomitant]

REACTIONS (2)
  - Platelet count decreased [Recovering/Resolving]
  - Wrong technique in drug usage process [Unknown]
